FAERS Safety Report 4571720-3 (Version None)
Quarter: 2005Q1

REPORT INFORMATION
  Report Type: 
  Country: None (occurrence: None)
  Receive Date: 20050207
  Receipt Date: 20050125
  Transmission Date: 20050727
  Serious: Yes (Death, Hospitalization)
  Sender: FDA-Public Use
  Company Number: US-ROCHE-393748

PATIENT
  Age: 45 Year
  Sex: Male
  Weight: 85.7 kg

DRUGS (23)
  1. XELODA [Suspect]
     Dosage: ON DAYS 1 TO 14 OF A 21 DAY CYCLE.
     Route: 042
     Dates: start: 20040611, end: 20040823
  2. WARFARIN SODIUM [Interacting]
     Indication: HYPERCOAGULATION
     Route: 065
  3. GEMZAR [Suspect]
     Dosage: ON DAYS 1 AND 8.
     Route: 042
     Dates: start: 20040325
  4. GEMZAR [Suspect]
     Dosage: ON DAYS 4 AND 11 OF A 21 DAY CYCLE.
     Route: 042
     Dates: start: 20040614
  5. GEMZAR [Suspect]
     Dosage: DOSE DATES FOR GEMCITABINE: 14, 28 JUNE, 05, 12, 26 JULY AND 02 AND 16 AUGUST 2004 (CUMULATIVE DOSE+
     Route: 042
     Dates: start: 20040628, end: 20040816
  6. DOXIL [Suspect]
     Route: 065
     Dates: end: 20040609
  7. TAXOTERE [Suspect]
     Dosage: ON DAYS 4 AND 11 OF A 21 DAY CYCLE.
     Route: 042
     Dates: start: 20040614, end: 20040816
  8. LOVENOX [Concomitant]
     Indication: HYPERCOAGULATION
  9. K-DUR 10 [Concomitant]
  10. PLETAL [Concomitant]
  11. EFFEXOR XR [Concomitant]
  12. SYNTHROID [Concomitant]
  13. DURICEF [Concomitant]
  14. BUMEX [Concomitant]
  15. DIFLUCAN [Concomitant]
  16. PERCOCET [Concomitant]
     Indication: PAIN
  17. ANZEMET [Concomitant]
  18. COMPAZINE [Concomitant]
  19. OXYCONTIN [Concomitant]
  20. ZOFRAN [Concomitant]
  21. MEGACE [Concomitant]
  22. BEXTRA [Concomitant]
  23. PANCREASE MT [Concomitant]

REACTIONS (29)
  - ANAEMIA [None]
  - ANISOCYTOSIS [None]
  - ASCITES [None]
  - ATELECTASIS [None]
  - DRUG INTERACTION [None]
  - GENERALISED OEDEMA [None]
  - HAEMOLYTIC URAEMIC SYNDROME [None]
  - KLEBSIELLA INFECTION [None]
  - LYMPHADENOPATHY MEDIASTINAL [None]
  - MALIGNANT NEOPLASM PROGRESSION [None]
  - METASTASES TO LIVER [None]
  - NEOPLASM PROGRESSION [None]
  - NEPHROTIC SYNDROME [None]
  - OEDEMA PERIPHERAL [None]
  - PANCYTOPENIA [None]
  - PERFORMANCE STATUS DECREASED [None]
  - PLEURAL EFFUSION [None]
  - POIKILOCYTOSIS [None]
  - POLYCHROMASIA [None]
  - PULMONARY OEDEMA [None]
  - RED BLOOD CELL MACROCYTES PRESENT [None]
  - RED BLOOD CELL SCHISTOCYTES PRESENT [None]
  - RENAL FAILURE [None]
  - RESPIRATORY DISTRESS [None]
  - RESPIRATORY FAILURE [None]
  - SPLENIC CYST [None]
  - SPLENIC INFARCTION [None]
  - THROMBOTIC THROMBOCYTOPENIC PURPURA [None]
  - WEIGHT INCREASED [None]
